FAERS Safety Report 9300123 (Version 3)
Quarter: 2013Q3

REPORT INFORMATION
  Report Type: Report from Study
  Country: SE (occurrence: SE)
  Receive Date: 20130521
  Receipt Date: 20130925
  Transmission Date: 20140515
  Serious: Yes (Death, Hospitalization, Disabling)
  Sender: FDA-Public Use
  Company Number: SE-BAYER-2013-061039

PATIENT
  Age: 77 Year
  Sex: Male
  Weight: 81.6 kg

DRUGS (3)
  1. ALPHARADIN [Suspect]
     Indication: PROSTATE CANCER METASTATIC
     Dosage: DAILY DOSE 4000 KBQ
     Route: 042
     Dates: start: 20130321, end: 20130321
  2. PREDNISOLON [Concomitant]
     Indication: PROSTATE CANCER
     Dosage: DAILY DOSE 10 MG
     Route: 048
     Dates: start: 20120529, end: 20130331
  3. HERACILLIN [Concomitant]
     Indication: LOCALISED INFECTION
     Dosage: DAILY DOSE 3 G
     Route: 048
     Dates: start: 20130225, end: 20130307

REACTIONS (2)
  - Abscess limb [Fatal]
  - Localised infection [Fatal]
